FAERS Safety Report 14531860 (Version 7)
Quarter: 2019Q3

REPORT INFORMATION
  Report Type: Report from Study
  Country: DE (occurrence: DE)
  Receive Date: 20180214
  Receipt Date: 20190812
  Transmission Date: 20191004
  Serious: Yes (Hospitalization, Other)
  Sender: FDA-Public Use
  Company Number: DE-MYLANLABS-2018M1009550

PATIENT
  Age: 68 Year
  Sex: Female
  Weight: 53 kg

DRUGS (35)
  1. RANITIDINE. [Suspect]
     Active Substance: RANITIDINE
     Indication: BREAST CANCER METASTATIC
     Dosage: 50 MILLIGRAM
     Route: 042
     Dates: start: 20110825
  2. ZOLEDRONIC ACID [Suspect]
     Active Substance: ZOLEDRONIC ACID
     Indication: BREAST CANCER METASTATIC
     Dosage: 3.3 MILLIGRAM
     Route: 042
     Dates: start: 20110825, end: 20110825
  3. XELODA [Suspect]
     Active Substance: CAPECITABINE
     Dosage: 2300 MILLIGRAM
     Dates: start: 20111019, end: 20111206
  4. DEXAMETHASONE. [Suspect]
     Active Substance: DEXAMETHASONE
     Indication: BREAST CANCER METASTATIC
     Dosage: 8 MILLIGRAM
     Route: 042
     Dates: start: 20110825
  5. AVASTIN [Suspect]
     Active Substance: BEVACIZUMAB
     Indication: BREAST CANCER
     Dosage: 530 MILLIGRAM
     Route: 042
     Dates: start: 20110825, end: 20110825
  6. AVASTIN [Suspect]
     Active Substance: BEVACIZUMAB
     Dosage: 520 MILLIGRAM
     Dates: start: 20111205, end: 20111205
  7. AVASTIN [Suspect]
     Active Substance: BEVACIZUMAB
     Dosage: 530 MILLIGRAM
     Route: 042
     Dates: start: 20110825, end: 20111205
  8. ZOMETA [Concomitant]
     Active Substance: ZOLEDRONIC ACID
     Indication: BREAST CANCER
     Dosage: 3.3 MILLIGRAM
     Route: 065
     Dates: start: 20110825
  9. TROFEN                             /00109201/ [Concomitant]
     Dosage: 1 DOSAGE FORM, QD
     Dates: start: 20110831
  10. DENOSUMAB [Concomitant]
     Active Substance: DENOSUMAB
     Indication: BREAST CANCER
     Dosage: 60 MG, UNK
     Route: 065
     Dates: start: 20101020
  11. XELODA [Suspect]
     Active Substance: CAPECITABINE
     Dosage: 1300 MG/M2, UNK
     Route: 065
     Dates: start: 20111206
  12. XELODA [Suspect]
     Active Substance: CAPECITABINE
     Dosage: 3000 MILLIGRAM/SQ. METER
     Route: 065
     Dates: start: 20111019, end: 20111206
  13. CAPECITABINE. [Suspect]
     Active Substance: CAPECITABINE
     Dosage: 1300 MILLIGRAM/SQ. METER
     Route: 065
     Dates: start: 20111206
  14. XELODA [Suspect]
     Active Substance: CAPECITABINE
     Indication: BREAST CANCER
     Dosage: 3000 MG, UNK
     Route: 065
     Dates: start: 20111019, end: 20111206
  15. TORSEMIDE. [Concomitant]
     Active Substance: TORSEMIDE
     Dosage: UNK UNK, QD
     Route: 065
  16. GRANISETRON [Suspect]
     Active Substance: GRANISETRON
     Indication: BREAST CANCER METASTATIC
     Dosage: 1 MILLIGRAM
     Route: 042
     Dates: start: 20110825
  17. BEVACIZUMAB. [Suspect]
     Active Substance: BEVACIZUMAB
     Dosage: 520 MILLIGRAM
     Route: 042
     Dates: start: 20111205, end: 20111205
  18. PACLITAXEL. [Suspect]
     Active Substance: PACLITAXEL
     Indication: BREAST CANCER METASTATIC
     Dosage: 80 MILLIGRAM/SQ. METER
     Route: 042
     Dates: start: 20110825, end: 20110922
  19. XELODA [Suspect]
     Active Substance: CAPECITABINE
     Dosage: 2300 MG, UNK
     Route: 065
     Dates: start: 20111109, end: 20111206
  20. TORSEMIDE. [Concomitant]
     Active Substance: TORSEMIDE
     Indication: PRODUCT USED FOR UNKNOWN INDICATION
     Dosage: 3 DF, QD
     Route: 065
  21. TORSEMIDE. [Concomitant]
     Active Substance: TORSEMIDE
     Dosage: 3 DOSAGE FORM, QD
     Route: 065
     Dates: start: 20100101
  22. TROFEN                             /00109201/ [Concomitant]
     Dosage: UNK UNK, QD
     Route: 065
     Dates: start: 20110831
  23. DENOSUMAB [Concomitant]
     Active Substance: DENOSUMAB
     Dosage: 120 MG, UNK
     Route: 065
     Dates: start: 20120116
  24. BEVACIZUMAB. [Suspect]
     Active Substance: BEVACIZUMAB
     Indication: BREAST CANCER
     Dosage: 530 MILLIGRAM
     Route: 042
     Dates: start: 20110825, end: 20110825
  25. CAPECITABINE. [Suspect]
     Active Substance: CAPECITABINE
     Indication: BREAST CANCER
     Dosage: 3000 MILLIGRAM
     Route: 065
     Dates: start: 20111019
  26. HYDROCHLOROTHIAZIDE. [Concomitant]
     Active Substance: HYDROCHLOROTHIAZIDE
     Indication: PRODUCT USED FOR UNKNOWN INDICATION
     Dosage: UNK
     Route: 065
     Dates: start: 201001
  27. TORSEMIDE. [Concomitant]
     Active Substance: TORSEMIDE
     Dosage: UNK UNK, QD
     Route: 065
     Dates: start: 201001
  28. ARIXTRA [Concomitant]
     Active Substance: FONDAPARINUX SODIUM
     Indication: THROMBOSIS PROPHYLAXIS
     Dosage: UNK
     Route: 065
     Dates: start: 20111219
  29. METOPROLOL. [Concomitant]
     Active Substance: METOPROLOL
     Dosage: UNK UNK, QD
     Route: 065
  30. TAVEGIL                            /00137201/ [Suspect]
     Active Substance: CLEMASTINE FUMARATE
     Indication: BREAST CANCER METASTATIC
     Dosage: 2 MILLIGRAM
     Route: 042
     Dates: start: 20110825
  31. TROFEN                             /00109201/ [Concomitant]
     Indication: PRODUCT USED FOR UNKNOWN INDICATION
     Dosage: 1 DOSAGE FORM, QD
  32. METOPROLOL. [Concomitant]
     Active Substance: METOPROLOL
     Indication: PRODUCT USED FOR UNKNOWN INDICATION
     Dosage: 2 DF, QD
     Route: 065
     Dates: start: 20100101
  33. ZOLEDRONIC ACID [Suspect]
     Active Substance: ZOLEDRONIC ACID
     Indication: BREAST CANCER METASTATIC
     Dosage: 3.3 MILLIGRAM
     Route: 042
     Dates: start: 20110825, end: 20110825
  34. XELODA [Suspect]
     Active Substance: CAPECITABINE
     Dosage: 3000 MILLIGRAM
     Dates: start: 20111206, end: 20111206
  35. XELODA [Suspect]
     Active Substance: CAPECITABINE
     Dosage: 1300 MILLIGRAM/SQ. METER
     Dates: start: 20111019

REACTIONS (15)
  - Dyspnoea [Recovered/Resolved]
  - Periodontitis [Not Recovered/Not Resolved]
  - Thrombosis [Not Recovered/Not Resolved]
  - Vomiting [Recovered/Resolved]
  - Sensory disturbance [Recovered/Resolved]
  - Weight decreased [Recovered/Resolved]
  - Dysphagia [Recovered/Resolved]
  - Diarrhoea [Recovered/Resolved]
  - General physical health deterioration [Recovered/Resolved]
  - Tooth erosion [Recovered/Resolved]
  - Venous thrombosis limb [Recovering/Resolving]
  - Pulpitis dental [Recovered/Resolved]
  - Mucosal inflammation [Recovered/Resolved]
  - Nausea [Recovered/Resolved]
  - Hypertension [Recovering/Resolving]

NARRATIVE: CASE EVENT DATE: 20110827
